FAERS Safety Report 4654858-1 (Version None)
Quarter: 2005Q2

REPORT INFORMATION
  Report Type: 
  Country: None (occurrence: None)
  Receive Date: 20050505
  Receipt Date: 20050502
  Transmission Date: 20051028
  Serious: Yes (Hospitalization)
  Sender: FDA-Public Use
  Company Number: 05-04-0620

PATIENT
  Age: 49 Year
  Sex: Male
  Weight: 108.8633 kg

DRUGS (4)
  1. CLOZAPINE [Suspect]
     Indication: SCHIZOPHRENIA, PARANOID TYPE
     Dosage: 100MG QAM ORAL
     Route: 048
     Dates: start: 20040701, end: 20050412
  2. DEPAKOTE [Concomitant]
  3. COGENTIN [Concomitant]
  4. SYNTHROID [Concomitant]

REACTIONS (4)
  - APPENDICITIS [None]
  - DELIRIUM [None]
  - NECROSIS [None]
  - SMALL INTESTINAL OBSTRUCTION [None]
